FAERS Safety Report 4827180-8 (Version None)
Quarter: 2005Q4

REPORT INFORMATION
  Report Type: 
  Country: None (occurrence: None)
  Receive Date: 20051014
  Receipt Date: 20050801
  Transmission Date: 20060501
  Serious: No
  Sender: FDA-Public Use
  Company Number: 2005SP000155

PATIENT
  Age: 56 Year
  Sex: Female
  Weight: 58.0604 kg

DRUGS (10)
  1. LUNESTA [Suspect]
     Indication: INSOMNIA
     Dosage: 2 MG; HS
     Dates: start: 20050407
  2. PROPRANOLOL [Concomitant]
  3. TORSEMIDE [Concomitant]
  4. ESTRA HS [Concomitant]
  5. SYNTHROID [Concomitant]
  6. NORETHINDRONE [Concomitant]
  7. ZELNORM [Concomitant]
  8. NORVASC [Concomitant]
  9. RESTASIS [Concomitant]
  10. ATACAND [Concomitant]

REACTIONS (2)
  - DRUG INEFFECTIVE [None]
  - MIDDLE INSOMNIA [None]
